FAERS Safety Report 7322214-3 (Version None)
Quarter: 2011Q1

REPORT INFORMATION
  Report Type: 
  Country: None (occurrence: None)
  Receive Date: 20110301
  Receipt Date: 20110223
  Transmission Date: 20110831
  Serious: Yes (Hospitalization, Other)
  Sender: FDA-Public Use
  Company Number: US-ASTRAZENECA-2007UW02195

PATIENT
  Age: 14945 Day
  Sex: Male
  Weight: 148.8 kg

DRUGS (19)
  1. SEROQUEL [Suspect]
     Dosage: 25 MG - 75 MG
     Route: 048
     Dates: start: 20040101
  2. COUMADIN [Concomitant]
     Indication: COAGULOPATHY
     Dosage: 10-12.5 MG
     Route: 048
     Dates: start: 19980610
  3. LIPITOR [Concomitant]
     Indication: HYPERLIPIDAEMIA
     Route: 048
     Dates: start: 20041201
  4. ZOLOFT [Concomitant]
     Indication: SLEEP DISORDER
     Dosage: 50-100 MG
     Route: 048
     Dates: start: 19950530
  5. KLONOPIN [Concomitant]
     Indication: NERVOUSNESS
     Route: 048
     Dates: start: 20030815
  6. KLONOPIN [Concomitant]
     Indication: DEPRESSION
     Route: 048
     Dates: start: 20030815
  7. MONOPRIL [Concomitant]
     Indication: HYPERTENSION
     Dosage: 20-40 MG
     Route: 048
     Dates: start: 19960813
  8. DARVOCET-N 100 [Concomitant]
     Indication: MUSCULOSKELETAL DISCOMFORT
     Dosage: 100-650 MG 1-2 EVERY 4-6 HOURS
     Route: 048
     Dates: start: 20030815
  9. SEROQUEL [Suspect]
     Indication: MAJOR DEPRESSION
     Dosage: 12.5-25 MG
     Route: 048
     Dates: start: 20040114
  10. DARVOCET-N 100 [Concomitant]
     Indication: PAIN
     Dosage: 100-650 MG 1-2 EVERY 4-6 HOURS
     Route: 048
     Dates: start: 20030815
  11. ZOCOR [Concomitant]
     Indication: BLOOD CHOLESTEROL INCREASED
     Route: 048
     Dates: start: 20030815
  12. SEROQUEL [Suspect]
     Indication: PSYCHOTIC DISORDER
     Dosage: 12.5-25 MG
     Route: 048
     Dates: start: 20040114
  13. LORAZEPAM [Concomitant]
     Indication: ANXIETY
     Dosage: 1 MG AS NEEDED
     Route: 048
     Dates: start: 20040318
  14. LEXAPRO [Concomitant]
     Indication: DEPRESSION
     Dosage: 20-30 MG
     Route: 048
     Dates: start: 20040114, end: 20070529
  15. EFFEXOR XR [Concomitant]
     Dosage: 37.5 - 150 MG
     Route: 048
     Dates: start: 20030815
  16. LORAZEPAM [Concomitant]
     Indication: SLEEP DISORDER
     Dosage: 1 MG AS NEEDED
     Route: 048
     Dates: start: 20040318
  17. SEROQUEL [Suspect]
     Indication: SLEEP DISORDER
     Dosage: 12.5-25 MG
     Route: 048
     Dates: start: 20040114
  18. SEROQUEL [Suspect]
     Dosage: 25 MG - 75 MG
     Route: 048
     Dates: start: 20040101
  19. SEROQUEL [Suspect]
     Dosage: 25 MG - 75 MG
     Route: 048
     Dates: start: 20040101

REACTIONS (4)
  - BLOOD GLUCOSE INCREASED [None]
  - ANGINA PECTORIS [None]
  - CORONARY ARTERY DISEASE [None]
  - TYPE 2 DIABETES MELLITUS [None]
